FAERS Safety Report 24189835 (Version 1)
Quarter: 2024Q3

REPORT INFORMATION
  Report Type: Spontaneous
  Country: US (occurrence: None)
  Receive Date: 20240807
  Receipt Date: 20240807
  Transmission Date: 20241016
  Serious: Yes (Other)
  Sender: Public
  Company Number: None

PATIENT
  Sex: Male

DRUGS (1)
  1. ORGOVYX [Suspect]
     Active Substance: RELUGOLIX

REACTIONS (16)
  - Cardiac disorder [None]
  - Palpitations [None]
  - Angina pectoris [None]
  - Treatment noncompliance [None]
  - Therapy interrupted [None]
  - Photopsia [None]
  - Visual impairment [None]
  - Headache [None]
  - Head discomfort [None]
  - Rheumatoid arthritis [None]
  - Dementia [None]
  - Hot flush [None]
  - General symptom [None]
  - Confusional state [None]
  - Agitation [None]
  - Aphasia [None]

NARRATIVE: CASE EVENT DATE: 20240607
